FAERS Safety Report 10267510 (Version 1)
Quarter: 2014Q2

REPORT INFORMATION
  Report Type: Spontaneous
  Country: US (occurrence: US)
  Receive Date: 20140630
  Receipt Date: 20140630
  Transmission Date: 20141212
  Serious: Yes (Other)
  Sender: FDA-Public Use
  Company Number: US-PFIZER INC-2014174487

PATIENT
  Age: 31 Year
  Sex: Male

DRUGS (10)
  1. PROTONIX [Suspect]
     Dosage: 40 MG, 1X/DAY
  2. EFFIENT [Concomitant]
     Dosage: 10 MG, 1X/DAY
  3. CRESTOR [Concomitant]
     Dosage: 40 MG, 1X/DAY
  4. METOPROLOL [Concomitant]
     Dosage: 25 MG, 1X/DAY
  5. LISINOPRIL [Concomitant]
     Dosage: 5 MG, 1X/DAY
  6. CELEXA [Concomitant]
     Dosage: 30 MG, 1X/DAY
  7. NITROGLYCERIN [Concomitant]
     Dosage: UNK
  8. ASA [Concomitant]
     Dosage: 325 MG, 1X/DAY
  9. TOPROL XL [Concomitant]
     Dosage: UNK
  10. HYDROCHLOROTHIAZIDE [Concomitant]
     Dosage: 12.5 MG, 1X/DAY

REACTIONS (1)
  - Myocardial infarction [Unknown]
